FAERS Safety Report 12617200 (Version 1)
Quarter: 2016Q3

REPORT INFORMATION
  Report Type: Spontaneous
  Country: US (occurrence: US)
  Receive Date: 20160803
  Receipt Date: 20160803
  Transmission Date: 20161109
  Serious: Yes (Hospitalization, Other)
  Sender: FDA-Public Use
  Company Number: US-ZYDUS-011754

PATIENT
  Age: 61 Year
  Sex: Male

DRUGS (6)
  1. FOLATE SODIUM/FOLIC ACID [Concomitant]
     Indication: PRODUCT USED FOR UNKNOWN INDICATION
     Route: 065
  2. METOPROLOL. [Concomitant]
     Active Substance: METOPROLOL
     Indication: PRODUCT USED FOR UNKNOWN INDICATION
     Route: 065
  3. AMIODARONE [Concomitant]
     Active Substance: AMIODARONE
     Indication: PRODUCT USED FOR UNKNOWN INDICATION
     Route: 065
  4. CYANOCOBALAMIN. [Concomitant]
     Active Substance: CYANOCOBALAMIN
     Indication: PRODUCT USED FOR UNKNOWN INDICATION
     Route: 065
  5. WARFARIN [Suspect]
     Active Substance: WARFARIN
     Indication: ATRIAL FIBRILLATION
     Route: 065
  6. WARFARIN [Suspect]
     Active Substance: WARFARIN
     Indication: ATRIAL FIBRILLATION
     Route: 065

REACTIONS (13)
  - Drug hypersensitivity [Recovering/Resolving]
  - Headache [Recovering/Resolving]
  - Muscle haemorrhage [Recovering/Resolving]
  - Prothrombin time prolonged [Recovered/Resolved]
  - Spontaneous haematoma [Recovering/Resolving]
  - Aphasia [Recovering/Resolving]
  - Groin pain [Recovering/Resolving]
  - Haemarthrosis [Recovering/Resolving]
  - Pelvic haematoma [Recovering/Resolving]
  - Joint range of motion decreased [Recovering/Resolving]
  - Subdural haematoma [Recovering/Resolving]
  - Ecchymosis [Recovering/Resolving]
  - Activated partial thromboplastin time prolonged [Recovered/Resolved]
